FAERS Safety Report 5482497-1 (Version None)
Quarter: 2007Q4

REPORT INFORMATION
  Report Type: 
  Country: None (occurrence: None)
  Receive Date: 20071011
  Receipt Date: 20070703
  Transmission Date: 20080405
  Serious: No
  Sender: FDA-Public Use
  Company Number: A0651029A

PATIENT
  Age: 78 Year
  Sex: Female

DRUGS (7)
  1. TYKERB [Suspect]
     Indication: BREAST CANCER
     Dosage: 1250MG PER DAY
     Route: 048
     Dates: start: 20070510
  2. XELODA [Suspect]
  3. XELODA [Concomitant]
  4. MULTI-VITAMIN [Concomitant]
  5. CALCIUM [Concomitant]
  6. ASCORBIC ACID [Concomitant]
  7. RADIATION TREATMENT [Concomitant]

REACTIONS (3)
  - ADVERSE DRUG REACTION [None]
  - FALL [None]
  - THERAPEUTIC RESPONSE UNEXPECTED [None]
